FAERS Safety Report 12841293 (Version 1)
Quarter: 2016Q4

REPORT INFORMATION
  Report Type: Spontaneous
  Country: US (occurrence: US)
  Receive Date: 20161012
  Receipt Date: 20161012
  Transmission Date: 20170207
  Serious: No
  Sender: FDA-Public Use
  Company Number: US-PERRIGO-16US018787

PATIENT
  Age: 1 Year
  Sex: Male
  Weight: 18.14 kg

DRUGS (3)
  1. CLINDAMYCIN. [Concomitant]
     Active Substance: CLINDAMYCIN
     Indication: STAPHYLOCOCCAL INFECTION
     Dosage: UNK
     Route: 065
  2. IBUPROFEN. [Suspect]
     Active Substance: IBUPROFEN
     Indication: PAIN
     Dosage: 142 MG, BID
     Route: 048
     Dates: start: 20160727, end: 20160729
  3. IBUPROFEN. [Suspect]
     Active Substance: IBUPROFEN
     Dosage: 142 MG, QD
     Route: 048
     Dates: start: 201607, end: 20160801

REACTIONS (4)
  - Lacrimation increased [Not Recovered/Not Resolved]
  - Cough [Not Recovered/Not Resolved]
  - Exposure to unspecified agent [Recovered/Resolved]
  - Asthenia [Not Recovered/Not Resolved]

NARRATIVE: CASE EVENT DATE: 20160727
